FAERS Safety Report 24566135 (Version 1)
Quarter: 2024Q4

REPORT INFORMATION
  Report Type: Report from Study
  Country: US (occurrence: US)
  Receive Date: 20241030
  Receipt Date: 20241030
  Transmission Date: 20250115
  Serious: Yes (Other)
  Sender: ALEXION PHARMACEUTICALS
  Company Number: US-AstraZeneca-CH-00730938A

PATIENT

DRUGS (2)
  1. TEZEPELUMAB [Suspect]
     Active Substance: TEZEPELUMAB
     Route: 065
  2. TEZEPELUMAB [Suspect]
     Active Substance: TEZEPELUMAB

REACTIONS (14)
  - Pneumothorax [Unknown]
  - Upper-airway cough syndrome [Unknown]
  - Insomnia [Unknown]
  - Hypersomnia [Unknown]
  - Pneumonia [Unknown]
  - Dysphonia [Unknown]
  - COVID-19 pneumonia [Unknown]
  - Essential hypertension [Unknown]
  - Mycobacterium avium complex infection [Unknown]
  - Cough [Unknown]
  - Hypercholesterolaemia [Unknown]
  - Bronchospasm [Unknown]
  - Pulmonary mass [Unknown]
  - Asthma [Unknown]
